FAERS Safety Report 16808852 (Version 1)
Quarter: 2019Q3

REPORT INFORMATION
  Report Type: Spontaneous
  Country: GB (occurrence: GB)
  Receive Date: 20190916
  Receipt Date: 20190916
  Transmission Date: 20191005
  Serious: Yes (Other)
  Sender: FDA-Public Use
  Company Number: GB-ACCORD-154843

PATIENT
  Age: 66 Year
  Sex: Female

DRUGS (1)
  1. ROPINIROLE/ROPINIROLE HYDROCHLORIDE [Suspect]
     Active Substance: ROPINIROLE HYDROCHLORIDE
     Indication: PARKINSON^S DISEASE
     Dosage: MORNING
     Route: 048
     Dates: start: 20190103, end: 20190103

REACTIONS (1)
  - Loss of consciousness [Recovered/Resolved]
